FAERS Safety Report 23318516 (Version 1)
Quarter: 2023Q4

REPORT INFORMATION
  Report Type: Spontaneous
  Country: DE (occurrence: DE)
  Receive Date: 20231220
  Receipt Date: 20231220
  Transmission Date: 20240110
  Serious: Yes (Other)
  Sender: FDA-Public Use
  Company Number: DE-BRISTOL-MYERS SQUIBB COMPANY-2023-180714

PATIENT
  Age: 59 Year
  Sex: Male
  Weight: 106 kg

DRUGS (3)
  1. ABECMA [Suspect]
     Active Substance: IDECABTAGENE VICLEUCEL
     Indication: Plasma cell myeloma
     Dosage: DOSE : UNAVAILABLE;     FREQ : ONE TIME ADMINISTRATION
     Route: 042
     Dates: start: 20230314, end: 20230314
  2. FLUDARABINE [Concomitant]
     Active Substance: FLUDARABINE PHOSPHATE
     Indication: Plasma cell myeloma
     Route: 042
  3. CYCLOPHOSPHAMIDE [Concomitant]
     Active Substance: CYCLOPHOSPHAMIDE
     Indication: Plasma cell myeloma
     Route: 042

REACTIONS (4)
  - Cytokine release syndrome [Recovered/Resolved]
  - Rash pruritic [Unknown]
  - Headache [Recovered/Resolved]
  - POEMS syndrome [Unknown]

NARRATIVE: CASE EVENT DATE: 20230315
